FAERS Safety Report 4428875-0 (Version None)
Quarter: 2004Q3

REPORT INFORMATION
  Report Type: 
  Country: None (occurrence: None)
  Receive Date: 20040813
  Receipt Date: 20040805
  Transmission Date: 20050211
  Serious: Yes (Death, Life-Threatening)
  Sender: FDA-Public Use
  Company Number: HQ9634626DEC2001

PATIENT
  Age: 67 Year
  Sex: Female

DRUGS (3)
  1. CORDARONE [Suspect]
     Indication: ATRIAL FIBRILLATION
     Dosage: 200 MG TABLET ORAL
     Route: 048
  2. CORDARONE [Suspect]
     Indication: ATRIAL FLUTTER
     Dosage: 200 MG TABLET ORAL
     Route: 048
  3. PREVISCAN (FLUINDIONE,) [Suspect]
     Indication: MITRAL VALVE DISEASE
     Dosage: 20 MG TABLET ORAL
     Route: 048

REACTIONS (13)
  - BRAIN HERNIATION [None]
  - BRAIN OEDEMA [None]
  - CEREBRAL HAEMATOMA [None]
  - DRUG INTERACTION [None]
  - FALL [None]
  - HAEMORRHAGIC STROKE [None]
  - HEADACHE [None]
  - INTERNATIONAL NORMALISED RATIO INCREASED [None]
  - INTRAVENTRICULAR HAEMORRHAGE [None]
  - MALAISE [None]
  - MENINGORRHAGIA [None]
  - MIOSIS [None]
  - PROTHROMBIN LEVEL DECREASED [None]
